FAERS Safety Report 4626634-7 (Version None)
Quarter: 2005Q1

REPORT INFORMATION
  Report Type: 
  Country: None (occurrence: None)
  Receive Date: 20050330
  Receipt Date: 20050316
  Transmission Date: 20050727
  Serious: Yes (Hospitalization)
  Sender: FDA-Public Use
  Company Number: 200510521BWH

PATIENT
  Age: 72 Year
  Sex: Male
  Weight: 118.5 kg

DRUGS (4)
  1. DTIC-DOME [Suspect]
     Indication: METASTATIC MALIGNANT MELANOMA
     Dosage: 1000 MG/M2, Q3WK, INTRAVENOUS
     Route: 042
     Dates: start: 20050216
  2. TAXOPREXIN (UNCODEABLE ^INVESTIGATIONAL DRUG^) [Suspect]
     Indication: METASTATIC MALIGNANT MELANOMA
  3. LORAZEPAM [Concomitant]
  4. ONDANSATRON [Concomitant]

REACTIONS (1)
  - PNEUMONIA [None]
